FAERS Safety Report 13075334 (Version 1)
Quarter: 2016Q4

REPORT INFORMATION
  Report Type: Report from Study
  Country: US (occurrence: US)
  Receive Date: 20161230
  Receipt Date: 20161230
  Transmission Date: 20170207
  Serious: Yes (Other)
  Sender: FDA-Public Use
  Company Number: US-CORCEPT THERAPEUTICS INC.-US-2016CRT000741

PATIENT

DRUGS (2)
  1. KORLYM [Suspect]
     Active Substance: MIFEPRISTONE
     Indication: CUSHING^S SYNDROME
  2. KORLYM [Suspect]
     Active Substance: MIFEPRISTONE
     Indication: HYPERADRENOCORTICISM
     Dosage: 300 MG, TID
     Route: 048
     Dates: start: 201410

REACTIONS (3)
  - Endometrial thickening [Unknown]
  - Endometrial hyperplasia [Unknown]
  - Product use issue [Unknown]

NARRATIVE: CASE EVENT DATE: 201410
